FAERS Safety Report 18122382 (Version 3)
Quarter: 2021Q1

REPORT INFORMATION
  Report Type: Spontaneous
  Country: US (occurrence: US)
  Receive Date: 20200807
  Receipt Date: 20210324
  Transmission Date: 20210419
  Serious: Yes (Hospitalization)
  Sender: FDA-Public Use
  Company Number: US-SA-2020SA205507

PATIENT
  Age: 39 Year
  Sex: Male

DRUGS (1)
  1. LUMIZYME [Suspect]
     Active Substance: ALGLUCOSIDASE ALFA
     Indication: GLYCOGEN STORAGE DISEASE TYPE II
     Dosage: 2250 MG, QOW
     Route: 042
     Dates: start: 20190911

REACTIONS (2)
  - Product dose omission issue [Unknown]
  - Cardiac operation [Unknown]

NARRATIVE: CASE EVENT DATE: 202101
